FAERS Safety Report 7393193-8 (Version None)
Quarter: 2011Q2

REPORT INFORMATION
  Report Type: 
  Country: None (occurrence: None)
  Receive Date: 20110404
  Receipt Date: 20110321
  Transmission Date: 20111010
  Serious: Yes (Hospitalization, Other)
  Sender: FDA-Public Use
  Company Number: CN-BAYER-2011-025135

PATIENT
  Age: 25 Year
  Sex: Female

DRUGS (6)
  1. LEVITRA [Suspect]
     Dosage: 5 MG, QD
     Dates: start: 20110311, end: 20110317
  2. DIURETICS [Concomitant]
  3. DIGOXIN [Concomitant]
  4. POTASSIUM [POTASSIUM] [Concomitant]
  5. WARFARIN SODIUM [Concomitant]
  6. LEVITRA [Suspect]
     Indication: PULMONARY HYPERTENSION
     Dosage: 5 MG, BID
     Dates: start: 20110211, end: 20110310

REACTIONS (7)
  - HEPATIC ENZYME INCREASED [None]
  - DIZZINESS [None]
  - SOMNOLENCE [None]
  - PULMONARY EMBOLISM [None]
  - ASTHENIA [None]
  - VOMITING [None]
  - LUNG INFECTION [None]
